FAERS Safety Report 6038037-1 (Version None)
Quarter: 2009Q1

REPORT INFORMATION
  Report Type: 
  Country: None (occurrence: None)
  Receive Date: 20090113
  Receipt Date: 20090113
  Transmission Date: 20090719
  Serious: No
  Sender: FDA-Public Use
  Company Number: None

PATIENT
  Age: 52 Year
  Sex: Male
  Weight: 113.3993 kg

DRUGS (1)
  1. CIPROFLOXACIN [Suspect]
     Indication: INFECTION PROPHYLAXIS
     Dosage: 500MG TWICE DAILY PO
     Route: 048
     Dates: start: 20081006, end: 20081012

REACTIONS (6)
  - FATIGUE [None]
  - HEADACHE [None]
  - HYPERTENSION [None]
  - NECK PAIN [None]
  - TENDON PAIN [None]
  - TENDONITIS [None]
